FAERS Safety Report 17548030 (Version 1)
Quarter: 2020Q1

REPORT INFORMATION
  Report Type: Other
  Country: US (occurrence: US)
  Receive Date: 20200317
  Receipt Date: 20200317
  Transmission Date: 20200409
  Serious: Yes (Hospitalization, Other)
  Sender: FDA-Public Use
  Company Number: US-APPCO PHARMA LLC-2081684

PATIENT
  Age: 55 Year
  Sex: Male

DRUGS (2)
  1. FENOFIBRATE. [Suspect]
     Active Substance: FENOFIBRATE
     Indication: OVERLAP SYNDROME
     Route: 065
  2. URSODEOXYCHOLIC ACID [Concomitant]
     Active Substance: URSODIOL
     Route: 065

REACTIONS (4)
  - Off label use [Unknown]
  - Nephropathy toxic [Unknown]
  - Rhabdomyolysis [Unknown]
  - Contraindicated product administered [Unknown]
